FAERS Safety Report 23914880 (Version 2)
Quarter: 2024Q2

REPORT INFORMATION
  Report Type: Spontaneous
  Country: US (occurrence: US)
  Receive Date: 20240529
  Receipt Date: 20240628
  Transmission Date: 20240716
  Serious: No
  Sender: FDA-Public Use
  Company Number: US-INCYTE CORPORATION-2024IN005354

PATIENT

DRUGS (2)
  1. JAKAFI [Suspect]
     Active Substance: RUXOLITINIB
     Indication: Chronic myelomonocytic leukaemia
     Dosage: 20 MILLIGRAM, BID
     Route: 048
     Dates: start: 202303
  2. ASPIRIN [Suspect]
     Active Substance: ASPIRIN
     Route: 065

REACTIONS (4)
  - Epistaxis [Recovered/Resolved]
  - Cellulitis [Unknown]
  - Arthropod bite [Unknown]
  - Off label use [Unknown]

NARRATIVE: CASE EVENT DATE: 20230301
